FAERS Safety Report 8104228 (Version 4)
Quarter: 2012Q4

REPORT INFORMATION
  Report Type: 
  Country: US (occurrence: US)
  Receive Date: 20110824
  Receipt Date: 20120917
  Transmission Date: 20130627
  Serious: Yes (Hospitalization, Other)
  Sender: FDA-Public Use
  Company Number: US-BAYER-2011-076198

PATIENT
  Age: 18 Year
  Sex: Female
  Weight: 98 kg

DRUGS (26)
  1. YAZ [Suspect]
     Dosage: UNK
     Dates: start: 200301, end: 200910
  2. YAZ [Suspect]
  3. YASMIN [Suspect]
     Dosage: UNK
     Dates: start: 200301, end: 200910
  4. VANCOMYCIN [Concomitant]
     Dosage: 1 g, UNK
     Route: 042
     Dates: start: 20100127
  5. VERSED [Concomitant]
     Dosage: UNK
     Route: 042
     Dates: start: 20100127
  6. FENTANYL [Concomitant]
     Dosage: UNK
     Route: 042
     Dates: start: 20100127
  7. ANCEL [Concomitant]
     Dosage: 1 g, UNK
     Route: 042
     Dates: start: 20100223
  8. EMEND [Concomitant]
     Indication: THERAPEUTIC EMBOLISATION
     Dosage: 125 mg/80 mg
  9. COMPAZINE [Concomitant]
  10. MIRALAX [Concomitant]
  11. DECADRON [Concomitant]
  12. PERCOCET [Concomitant]
     Dosage: 5/,325
  13. XANAX [Concomitant]
     Indication: ANXIETY
     Dosage: 1 mg, UNK
  14. PHENERGAN [Concomitant]
     Route: 054
  15. Z-PAK [Concomitant]
  16. CISPLATIN [Concomitant]
  17. LO/OVRAL [Concomitant]
     Indication: CONTRACEPTION
  18. GRANISETRON [Concomitant]
     Indication: NAUSEA
     Route: 062
  19. NEXIUM [Concomitant]
  20. KEFLEX [Concomitant]
  21. VICODIN [Concomitant]
     Dosage: 10 mg, PRN
     Dates: start: 20100129
  22. MANNITOL [Concomitant]
     Dosage: 25 g, UNK
     Route: 042
     Dates: start: 20100203
  23. MAGNESIUM SULFATE [Concomitant]
     Dosage: 1 g, UNK
     Route: 042
     Dates: start: 20100203
  24. PEPCID [Concomitant]
     Dosage: 20 mg, UNK
     Route: 042
     Dates: start: 20100203
  25. LOW-OGESTREL [Concomitant]
     Dosage: 0.3 - 0.03 mg, UNK
     Dates: start: 20100128
  26. NORGESTREL [NORGESTREL] [Concomitant]
     Dosage: 0.3 - 0.03 mg UNK
     Route: 048
     Dates: start: 20091016

REACTIONS (6)
  - Pulmonary embolism [Recovered/Resolved]
  - Pain [Recovered/Resolved]
  - Injury [Recovered/Resolved]
  - Post-traumatic stress disorder [Recovered/Resolved]
  - Anxiety [None]
  - Depression [None]
